FAERS Safety Report 9483249 (Version 1)
Quarter: 2013Q3

REPORT INFORMATION
  Report Type: Spontaneous
  Country: US (occurrence: US)
  Receive Date: 20130828
  Receipt Date: 20130828
  Transmission Date: 20140515
  Serious: Yes (Hospitalization)
  Sender: FDA-Public Use
  Company Number: US-AMGEN-KDL245378

PATIENT
  Age: 67 Year
  Sex: Female

DRUGS (4)
  1. ENBREL [Suspect]
     Indication: RHEUMATOID ARTHRITIS
     Dosage: 25 MG, QWK
     Route: 058
     Dates: start: 20040901
  2. HYDROXYCHLOROQUINE SULFATE [Concomitant]
     Dosage: 400 MG, QD
     Dates: start: 2001
  3. METHOTREXATE [Concomitant]
     Dosage: UNK UNK, UNK
     Dates: start: 20040901
  4. ABATACEPT (BRISTOL-MYERS SQUIBB) [Concomitant]

REACTIONS (3)
  - Chest discomfort [Unknown]
  - Swelling face [Unknown]
  - Paraesthesia [Not Recovered/Not Resolved]
